FAERS Safety Report 9009615 (Version 1)
Quarter: 2013Q1

REPORT INFORMATION
  Report Type: Spontaneous
  Country: US (occurrence: US)
  Receive Date: 20130110
  Receipt Date: 20130110
  Transmission Date: 20140127
  Serious: Yes (Other)
  Sender: FDA-Public Use
  Company Number: US-009507513-1301USA001839

PATIENT
  Age: 71 Year
  Sex: Male

DRUGS (13)
  1. MONTELUKAST SODIUM [Suspect]
     Route: 048
  2. OXYPERTINE [Suspect]
     Route: 048
  3. BROMHEXINE HYDROCHLORIDE [Suspect]
     Route: 048
  4. THEOPHYLLINE [Suspect]
     Route: 048
  5. CAMOSTAT MESYLATE [Suspect]
     Route: 048
  6. URSODIOL [Suspect]
     Route: 048
  7. CIMETIDINE [Suspect]
     Route: 048
  8. NICOTINIC ACID [Suspect]
     Route: 048
  9. CLARITH [Suspect]
     Route: 048
  10. SULTAMICILLIN TOSYLATE [Concomitant]
     Indication: PRODUCT USED FOR UNKNOWN INDICATION
     Route: 050
  11. BUDESONIDE [Concomitant]
     Indication: PNEUMONIA
     Route: 055
  12. TULOBUTEROL [Concomitant]
  13. IMIPENEM (+) CILASTATIN SODIUM [Concomitant]
     Route: 050

REACTIONS (1)
  - Haemolytic anaemia [Unknown]
